FAERS Safety Report 23994414 (Version 1)
Quarter: 2024Q2

REPORT INFORMATION
  Report Type: Spontaneous
  Country: US (occurrence: None)
  Receive Date: 20240619
  Receipt Date: 20240619
  Transmission Date: 20240715
  Serious: Yes (Life-Threatening, Hospitalization, Disabling)
  Sender: FDA-Public Use
  Company Number: None

PATIENT
  Age: 81 Year
  Sex: Female
  Weight: 59.6 kg

DRUGS (3)
  1. ANDEXXA [Suspect]
     Active Substance: ANDEXANET ALFA
     Dosage: OTHER FREQUENCY : ONCE BOLUS;?
     Route: 040
  2. ANDEXXA [Suspect]
     Active Substance: ANDEXANET ALFA
     Route: 041
  3. APIXABAN [Suspect]
     Active Substance: APIXABAN

REACTIONS (8)
  - Cardiac procedure complication [None]
  - Cardiac perforation [None]
  - Iatrogenic injury [None]
  - Cardiac tamponade [None]
  - Haemorrhage [None]
  - Ventricular fibrillation [None]
  - Cardiac arrest [None]
  - Cerebrovascular accident [None]

NARRATIVE: CASE EVENT DATE: 20240617
